FAERS Safety Report 6149725-0 (Version None)
Quarter: 2009Q2

REPORT INFORMATION
  Report Type: 
  Country: None (occurrence: None)
  Receive Date: 20090407
  Receipt Date: 20090407
  Transmission Date: 20091009
  Serious: Yes (Life-Threatening, Hospitalization)
  Sender: FDA-Public Use
  Company Number: None

PATIENT
  Sex: Female

DRUGS (1)
  1. EQUATE NICOTINE PATCH 21 MG WALMART [Suspect]
     Indication: SMOKING CESSATION THERAPY
     Dosage: 1 PATCH DAILY
     Dates: start: 20090406, end: 20090406

REACTIONS (2)
  - BURNING SENSATION [None]
  - DIZZINESS [None]
